FAERS Safety Report 16582070 (Version 8)
Quarter: 2020Q1

REPORT INFORMATION
  Report Type: Report from Study
  Country: JP (occurrence: JP)
  Receive Date: 20190717
  Receipt Date: 20200310
  Transmission Date: 20200409
  Serious: Yes (Hospitalization, Other)
  Sender: FDA-Public Use
  Company Number: PHJP2019JP008603

PATIENT
  Age: 10 Year
  Sex: Male

DRUGS (41)
  1. PREDNISOLONE. [Concomitant]
     Active Substance: PREDNISOLONE
     Dosage: 3.5 MG, UNK
     Route: 065
  2. LIMETHASON [Concomitant]
     Active Substance: DEXAMETHASONE PALMITATE
     Indication: HAEMOPHAGOCYTIC LYMPHOHISTIOCYTOSIS
     Dosage: 5 MG
     Route: 058
     Dates: start: 20181228, end: 20181231
  3. CEFOTAXIME [Concomitant]
     Active Substance: CEFOTAXIME SODIUM
     Indication: PRODUCT USED FOR UNKNOWN INDICATION
     Dosage: 3 G
     Route: 065
     Dates: start: 20190516, end: 20190519
  4. SOLU-MEDROL [Concomitant]
     Active Substance: METHYLPREDNISOLONE SODIUM SUCCINATE
     Indication: STILL^S DISEASE
     Dosage: 1 G
     Route: 065
     Dates: start: 20190520, end: 20190522
  5. ILARIS [Suspect]
     Active Substance: CANAKINUMAB
     Dosage: 130.5 MG
     Route: 058
     Dates: start: 20180913
  6. ILARIS [Suspect]
     Active Substance: CANAKINUMAB
     Dosage: 300 MG
     Route: 058
     Dates: start: 20190411
  7. PREDNISOLONE. [Concomitant]
     Active Substance: PREDNISOLONE
     Indication: STILL^S DISEASE
     Dosage: 12 MG, UNK
     Route: 065
  8. LIMETHASON [Concomitant]
     Active Substance: DEXAMETHASONE PALMITATE
     Dosage: 5 MG
     Route: 058
     Dates: start: 20190517, end: 20190519
  9. ILARIS [Suspect]
     Active Substance: CANAKINUMAB
     Dosage: 150 MG
     Route: 058
     Dates: start: 20190124
  10. CYCLOSPORINE. [Suspect]
     Active Substance: CYCLOSPORINE
     Indication: STILL^S DISEASE
     Dosage: 150 MG
     Route: 048
     Dates: start: 20181228
  11. PREDNISOLONE. [Concomitant]
     Active Substance: PREDNISOLONE
     Dosage: 1.5 MG, UNK
     Route: 065
  12. PREDNISOLONE. [Concomitant]
     Active Substance: PREDNISOLONE
     Dosage: 5 MG
     Route: 058
  13. METHOTREXATE. [Concomitant]
     Active Substance: METHOTREXATE
     Indication: STILL^S DISEASE
     Dosage: 6 MG, QW
     Route: 048
     Dates: start: 20150713, end: 20180917
  14. FAMOTIDINE. [Concomitant]
     Active Substance: FAMOTIDINE
     Indication: PRODUCT USED FOR UNKNOWN INDICATION
     Dosage: 20 MG
     Route: 048
     Dates: start: 20181018
  15. LIMETHASON [Concomitant]
     Active Substance: DEXAMETHASONE PALMITATE
     Dosage: 5 MG
     Route: 058
     Dates: start: 20190523, end: 20190526
  16. RECOMODULIN [Concomitant]
     Active Substance: THROMBOMODULIN ALFA
     Indication: STILL^S DISEASE
     Dosage: 16640 U
     Route: 065
     Dates: start: 20190517, end: 20190519
  17. ILARIS [Suspect]
     Active Substance: CANAKINUMAB
     Indication: STILL^S DISEASE
     Dosage: 121.5 MG
     Route: 058
     Dates: start: 20180712
  18. PREDNISOLONE. [Concomitant]
     Active Substance: PREDNISOLONE
     Dosage: 6 MG, UNK
     Route: 065
  19. PREDNISOLONE. [Concomitant]
     Active Substance: PREDNISOLONE
     Dosage: 25 MG, UNK
     Route: 065
  20. PREDNISOLONE. [Concomitant]
     Active Substance: PREDNISOLONE
     Dosage: 10 MG
     Route: 058
  21. PREDNISOLONE. [Concomitant]
     Active Substance: PREDNISOLONE
     Dosage: 17.5 MG
     Route: 058
  22. LIMETHASON [Concomitant]
     Active Substance: DEXAMETHASONE PALMITATE
     Indication: STILL^S DISEASE
     Dosage: 7.5 MG
     Route: 058
     Dates: start: 20181016, end: 20181022
  23. ILARIS [Suspect]
     Active Substance: CANAKINUMAB
     Dosage: 129 MG
     Route: 058
     Dates: start: 20180816
  24. ILARIS [Suspect]
     Active Substance: CANAKINUMAB
     Dosage: 150 MG
     Route: 058
     Dates: start: 20190212
  25. ILARIS [Suspect]
     Active Substance: CANAKINUMAB
     Dosage: 300 MG
     Route: 058
     Dates: start: 20190312
  26. PREDNISOLONE. [Concomitant]
     Active Substance: PREDNISOLONE
     Dosage: 10 MG, UNK
     Route: 065
  27. SOLU-MEDROL [Concomitant]
     Active Substance: METHYLPREDNISOLONE SODIUM SUCCINATE
     Dosage: 1 G
     Route: 065
     Dates: start: 20190527, end: 20190529
  28. ILARIS [Suspect]
     Active Substance: CANAKINUMAB
     Dosage: 130.5 MG
     Route: 058
     Dates: start: 20181025
  29. ILARIS [Suspect]
     Active Substance: CANAKINUMAB
     Dosage: 142.5 MG
     Route: 058
     Dates: start: 20181120
  30. ILARIS [Suspect]
     Active Substance: CANAKINUMAB
     Dosage: 300 MG
     Route: 058
     Dates: start: 20190509
  31. PREDNISOLONE. [Concomitant]
     Active Substance: PREDNISOLONE
     Dosage: 5.5 MG, UNK
     Route: 065
  32. PREDNISOLONE. [Concomitant]
     Active Substance: PREDNISOLONE
     Dosage: 12.5 MG
     Route: 058
  33. SULBACTAM [Concomitant]
     Active Substance: SULBACTAM
     Indication: PRODUCT USED FOR UNKNOWN INDICATION
     Dosage: 6 G
     Route: 065
     Dates: start: 20190519, end: 20190524
  34. ACTEMRA [Concomitant]
     Active Substance: TOCILIZUMAB
     Indication: STILL^S DISEASE
     Dosage: 400 MG, BIW
     Route: 065
     Dates: start: 20190530
  35. ILARIS [Suspect]
     Active Substance: CANAKINUMAB
     Dosage: 142.5 MG
     Route: 058
     Dates: start: 20190104
  36. PREDNISOLONE. [Concomitant]
     Active Substance: PREDNISOLONE
     Dosage: 30 MG, UNK
     Route: 065
  37. PREDNISOLONE. [Concomitant]
     Active Substance: PREDNISOLONE
     Dosage: 30 MG
     Route: 048
     Dates: start: 20181023
  38. TACROLIMUS. [Concomitant]
     Active Substance: TACROLIMUS
     Indication: STILL^S DISEASE
     Dosage: UNK
     Route: 065
  39. EDIROL [Concomitant]
     Active Substance: ELDECALCITOL
     Indication: PRODUCT USED FOR UNKNOWN INDICATION
     Dosage: 0.75 UG
     Route: 065
     Dates: start: 20181025
  40. RELENZA [Concomitant]
     Active Substance: ZANAMIVIR
     Indication: PRODUCT USED FOR UNKNOWN INDICATION
     Dosage: 10 MG
     Route: 065
     Dates: start: 20190119, end: 20190128
  41. LIMETHASON [Concomitant]
     Active Substance: DEXAMETHASONE PALMITATE
     Dosage: 5 MG
     Route: 058
     Dates: start: 20190227, end: 20190305

REACTIONS (17)
  - Impetigo [Recovering/Resolving]
  - Cushingoid [Not Recovered/Not Resolved]
  - Haemophagocytic lymphohistiocytosis [Recovered/Resolved]
  - Cytopenia [Unknown]
  - Hepatic enzyme increased [Unknown]
  - Headache [Unknown]
  - Platelet count decreased [Unknown]
  - Cytokine storm [Unknown]
  - Pyrexia [Unknown]
  - Nausea [Unknown]
  - Lymphadenopathy [Unknown]
  - Blood fibrinogen decreased [Unknown]
  - Coagulopathy [Unknown]
  - Still^s disease [Unknown]
  - Gastroenteritis [Recovering/Resolving]
  - Hypertrichosis [Not Recovered/Not Resolved]
  - Dental caries [Recovered/Resolved]

NARRATIVE: CASE EVENT DATE: 20180913
